FAERS Safety Report 23497524 (Version 2)
Quarter: 2024Q2

REPORT INFORMATION
  Report Type: Spontaneous
  Country: US (occurrence: US)
  Receive Date: 20240208
  Receipt Date: 20240527
  Transmission Date: 20240715
  Serious: No
  Sender: FDA-Public Use
  Company Number: US-SA-SAC20240205000831

PATIENT
  Age: 16 Year
  Sex: Female

DRUGS (1)
  1. DUPIXENT [Suspect]
     Active Substance: DUPILUMAB
     Indication: Dermatitis atopic
     Dosage: 200 MG, QOW
     Route: 058

REACTIONS (7)
  - Injection site urticaria [Recovered/Resolved]
  - Asthenia [Unknown]
  - Somnolence [Unknown]
  - Injection site pruritus [Recovered/Resolved]
  - Scratch [Recovered/Resolved]
  - Injection site erythema [Recovered/Resolved]
  - Inappropriate schedule of product administration [Unknown]
